FAERS Safety Report 6437820-8 (Version None)
Quarter: 2009Q4

REPORT INFORMATION
  Report Type: 
  Country: None (occurrence: None)
  Receive Date: 20091112
  Receipt Date: 20091103
  Transmission Date: 20100525
  Serious: Yes (Hospitalization, Other)
  Sender: FDA-Public Use
  Company Number: US-AMGEN-QUU369060

PATIENT
  Sex: Female

DRUGS (15)
  1. ENBREL [Suspect]
     Indication: RHEUMATOID ARTHRITIS
     Route: 058
     Dates: start: 20050503, end: 20070601
  2. METHOTREXATE [Suspect]
     Route: 048
     Dates: start: 20041101
  3. PREDNISONE [Suspect]
     Dates: start: 20050101
  4. CELEBREX [Concomitant]
  5. NEXIUM [Concomitant]
  6. FOLIC ACID [Concomitant]
  7. CYMBALTA [Concomitant]
  8. OXYCODONE [Concomitant]
  9. FLEXERIL [Concomitant]
  10. IRON [Concomitant]
  11. TRACLEER [Concomitant]
  12. MULTI-VITAMINS [Concomitant]
  13. CALCIUM [Concomitant]
  14. ENABLEX [Concomitant]
  15. ASPIRIN [Concomitant]

REACTIONS (19)
  - ARTHRALGIA [None]
  - ARTHRITIS INFECTIVE [None]
  - BLISTER [None]
  - DEPRESSED MOOD [None]
  - DEVICE RELATED INFECTION [None]
  - DRY MOUTH [None]
  - HIP ARTHROPLASTY [None]
  - JOINT DESTRUCTION [None]
  - KNEE ARTHROPLASTY [None]
  - OEDEMA PERIPHERAL [None]
  - OSTEOPENIA [None]
  - PULMONARY FIBROSIS [None]
  - PULMONARY HYPERTENSION [None]
  - RASH PRURITIC [None]
  - RAYNAUD'S PHENOMENON [None]
  - SLEEP APNOEA SYNDROME [None]
  - SOFT TISSUE NECROSIS [None]
  - STAPHYLOCOCCAL INFECTION [None]
  - STAPHYLOCOCCAL SEPSIS [None]
